FAERS Safety Report 12959236 (Version 1)
Quarter: 2016Q4

REPORT INFORMATION
  Report Type: Report from Study
  Country: US (occurrence: US)
  Receive Date: 20161121
  Receipt Date: 20161121
  Transmission Date: 20170207
  Serious: Yes (Hospitalization)
  Sender: FDA-Public Use
  Company Number: US-GILEAD-2016-0244144

PATIENT
  Age: 64 Year
  Sex: Female

DRUGS (11)
  1. METFORMIN [Concomitant]
     Active Substance: METFORMIN HYDROCHLORIDE
  2. SIMVASTATIN. [Concomitant]
     Active Substance: SIMVASTATIN
  3. IRON [Concomitant]
     Active Substance: IRON
  4. VITAMIN D2 [Concomitant]
     Active Substance: ERGOCALCIFEROL
  5. DIGOXIN. [Concomitant]
     Active Substance: DIGOXIN
  6. WARFARIN [Concomitant]
     Active Substance: WARFARIN
  7. AMBRISENTAN [Suspect]
     Active Substance: AMBRISENTAN
     Indication: PRODUCT USED FOR UNKNOWN INDICATION
     Dosage: 10 MG, QD
     Route: 065
  8. FUROSEMIDE. [Concomitant]
     Active Substance: FUROSEMIDE
  9. LEVOTHYROXINE. [Concomitant]
     Active Substance: LEVOTHYROXINE
  10. AMIODARONE [Concomitant]
     Active Substance: AMIODARONE
  11. ALLOPURINOL. [Concomitant]
     Active Substance: ALLOPURINOL

REACTIONS (4)
  - Tongue discolouration [Recovering/Resolving]
  - Oxygen saturation decreased [Unknown]
  - Glossodynia [Recovering/Resolving]
  - Feeding disorder [Recovering/Resolving]
